FAERS Safety Report 6213969-X (Version None)
Quarter: 2009Q2

REPORT INFORMATION
  Report Type: 
  Country: None (occurrence: None)
  Receive Date: 20090604
  Receipt Date: 20090601
  Transmission Date: 20091009
  Serious: Yes (Hospitalization)
  Sender: FDA-Public Use
  Company Number: FR-JNJFOC-20090600368

PATIENT
  Age: 62 Year
  Sex: Female

DRUGS (6)
  1. TAVANIC [Suspect]
     Indication: LUNG DISORDER
     Route: 042
  2. AUGMENTIN [Suspect]
     Indication: LUNG DISORDER
     Route: 042
  3. TAZOCILLINE [Suspect]
     Indication: LUNG DISORDER
     Route: 042
  4. AMIKLIN [Suspect]
     Indication: LUNG DISORDER
     Route: 042
  5. VANCOMYCINE [Suspect]
     Indication: LUNG DISORDER
     Route: 042
  6. TRIFLUCAN [Suspect]
     Indication: LUNG DISORDER
     Route: 048

REACTIONS (4)
  - DERMATITIS BULLOUS [None]
  - DRUG RASH WITH EOSINOPHILIA AND SYSTEMIC SYMPTOMS [None]
  - FACE OEDEMA [None]
  - PURPURA [None]
